FAERS Safety Report 11927009 (Version 1)
Quarter: 2016Q1

REPORT INFORMATION
  Report Type: Spontaneous
  Country: US (occurrence: None)
  Receive Date: 20160115
  Receipt Date: 20160115
  Transmission Date: 20160526
  Serious: Yes (Hospitalization)
  Sender: FDA-Public Use
  Company Number: None

PATIENT
  Age: 62 Year
  Sex: Male
  Weight: 95.71 kg

DRUGS (8)
  1. MEDTRONIC STENT [Concomitant]
  2. INVOKANA [Concomitant]
     Active Substance: CANAGLIFLOZIN
  3. KOMBIGLYZE XR [Suspect]
     Active Substance: METFORMIN HYDROCHLORIDE\SAXAGLIPTIN HYDROCHLORIDE
     Indication: TYPE 2 DIABETES MELLITUS
     Route: 048
     Dates: start: 20130531, end: 20160114
  4. MEDTRONIC PACEMAKER [Concomitant]
  5. LISINOPRIL. [Concomitant]
     Active Substance: LISINOPRIL
  6. PIOGLITAZONE. [Concomitant]
     Active Substance: PIOGLITAZONE
  7. LOW DOSE ASPIRIN [Concomitant]
     Active Substance: ASPIRIN
  8. SIMVASTATIN. [Concomitant]
     Active Substance: SIMVASTATIN

REACTIONS (2)
  - Cardiac pacemaker insertion [None]
  - Heart rate decreased [None]

NARRATIVE: CASE EVENT DATE: 20151215
